FAERS Safety Report 8015738-7 (Version None)
Quarter: 2011Q4

REPORT INFORMATION
  Report Type: 
  Country: None (occurrence: None)
  Receive Date: 20111230
  Receipt Date: 20111223
  Transmission Date: 20120403
  Serious: Yes (Disabling)
  Sender: FDA-Public Use
  Company Number: PHHY2011IT111876

PATIENT
  Sex: Female

DRUGS (3)
  1. CHEMOTHERAPEUTICS [Concomitant]
     Dosage: UNK
     Dates: start: 20080101, end: 20110905
  2. HYPOGLYCEMIC DRUG [Concomitant]
  3. ZOMETA [Suspect]
     Indication: BREAST CANCER METASTATIC
     Route: 042
     Dates: start: 20091001, end: 20110628

REACTIONS (1)
  - EXPOSED BONE IN JAW [None]
